FAERS Safety Report 6603132-2 (Version None)
Quarter: 2010Q1

REPORT INFORMATION
  Report Type: 
  Country: None (occurrence: None)
  Receive Date: 20100226
  Receipt Date: 20100216
  Transmission Date: 20100710
  Serious: Yes (Other)
  Sender: FDA-Public Use
  Company Number: US-PFIZER INC-2010020651

PATIENT
  Sex: Female
  Weight: 63.5 kg

DRUGS (5)
  1. AROMASIN [Suspect]
     Indication: BREAST CANCER FEMALE
     Dosage: UNK
  2. VALSARTAN [Concomitant]
     Dosage: 80 MG, 1X/DAY
     Route: 048
  3. SIMVASTATIN [Concomitant]
     Dosage: 20 MG, 1X/DAY
  4. NOVOLIN [Concomitant]
     Indication: DIABETES MELLITUS
     Dosage: 4 IU, UNK
  5. INSULIN DETEMIR [Concomitant]
     Indication: DIABETES MELLITUS
     Dosage: UNK

REACTIONS (1)
  - DIABETES MELLITUS INADEQUATE CONTROL [None]
